FAERS Safety Report 6889324-6 (Version None)
Quarter: 2010Q3

REPORT INFORMATION
  Report Type: 
  Country: None (occurrence: None)
  Receive Date: 20100730
  Receipt Date: 20080212
  Transmission Date: 20110219
  Serious: No
  Sender: FDA-Public Use
  Company Number: US-PFIZER INC-2008014633

PATIENT
  Age: 66 Year
  Sex: Male

DRUGS (4)
  1. LIPITOR [Suspect]
     Indication: BLOOD CHOLESTEROL ABNORMAL
     Dates: end: 20080128
  2. CARTIA XT [Suspect]
     Indication: HYPERTENSION
     Route: 048
     Dates: start: 20070501
  3. KERLONE [Concomitant]
  4. ALTACE [Concomitant]

REACTIONS (4)
  - BLOOD CREATINE PHOSPHOKINASE INCREASED [None]
  - JOINT CREPITATION [None]
  - MUSCULOSKELETAL STIFFNESS [None]
  - NECK PAIN [None]
